FAERS Safety Report 25206115 (Version 1)
Quarter: 2025Q2

REPORT INFORMATION
  Report Type: Spontaneous
  Country: US (occurrence: US)
  Receive Date: 20250417
  Receipt Date: 20250417
  Transmission Date: 20250717
  Serious: Yes (Life-Threatening, Hospitalization, Other)
  Sender: RANBAXY
  Company Number: US-SUN PHARMACEUTICAL INDUSTRIES LTD-2025R1-503598

PATIENT
  Age: 56 Year
  Sex: Male

DRUGS (6)
  1. BACLOFEN [Interacting]
     Active Substance: BACLOFEN
     Indication: Chronic disease
     Route: 065
  2. CARBIDOPA AND LEVODOPA [Interacting]
     Active Substance: CARBIDOPA\LEVODOPA
     Indication: Chronic disease
     Route: 065
  3. LAMOTRIGINE [Interacting]
     Active Substance: LAMOTRIGINE
     Indication: Chronic disease
     Route: 065
  4. LURASIDONE [Interacting]
     Active Substance: LURASIDONE
     Indication: Chronic disease
     Route: 065
  5. TRAZODONE [Interacting]
     Active Substance: TRAZODONE HYDROCHLORIDE
     Indication: Chronic disease
     Route: 065
  6. VORTIOXETINE [Interacting]
     Active Substance: VORTIOXETINE
     Indication: Chronic disease
     Route: 065

REACTIONS (3)
  - Neuroleptic malignant syndrome [Unknown]
  - Drug interaction [Unknown]
  - Serotonin syndrome [Unknown]
